FAERS Safety Report 22726906 (Version 6)
Quarter: 2024Q1

REPORT INFORMATION
  Report Type: Spontaneous
  Country: US (occurrence: US)
  Receive Date: 20230720
  Receipt Date: 20240214
  Transmission Date: 20240410
  Serious: No
  Sender: FDA-Public Use
  Company Number: US-BRISTOL-MYERS SQUIBB COMPANY-2023-102143

PATIENT
  Age: 69 Year
  Sex: Male
  Weight: 79.9 kg

DRUGS (4)
  1. REVLIMID [Suspect]
     Active Substance: LENALIDOMIDE
     Indication: Follicular lymphoma
     Route: 048
     Dates: start: 202306
  2. REVLIMID [Suspect]
     Active Substance: LENALIDOMIDE
     Indication: Non-Hodgkin^s lymphoma
     Route: 048
     Dates: start: 202306
  3. REVLIMID [Suspect]
     Active Substance: LENALIDOMIDE
     Indication: Diffuse large B-cell lymphoma
  4. RITUXAN [Concomitant]
     Active Substance: RITUXIMAB
     Indication: Product used for unknown indication

REACTIONS (17)
  - Abdominal pain [Unknown]
  - Abdominal discomfort [Unknown]
  - Nausea [Unknown]
  - Sinusitis [Unknown]
  - Bronchitis [Recovering/Resolving]
  - Asthma [Unknown]
  - Gastrointestinal disorder [Recovering/Resolving]
  - Rash [Unknown]
  - Plantar fasciitis [Recovered/Resolved]
  - Red blood cell count decreased [Unknown]
  - Arthralgia [Unknown]
  - Depression [Unknown]
  - Depressed mood [Unknown]
  - Decreased appetite [Unknown]
  - Diarrhoea [Unknown]
  - Constipation [Unknown]
  - Nervousness [Unknown]
